FAERS Safety Report 6977342-9 (Version None)
Quarter: 2010Q3

REPORT INFORMATION
  Report Type: 
  Country: None (occurrence: None)
  Receive Date: 20100910
  Receipt Date: 20100903
  Transmission Date: 20110219
  Serious: Yes (Death, Other)
  Sender: FDA-Public Use
  Company Number: PHHO2010US11549

PATIENT
  Age: 65 Year
  Sex: Male
  Weight: 119.4 kg

DRUGS (12)
  1. AFINITOR [Suspect]
     Indication: ACUTE MYELOID LEUKAEMIA
     Dosage: 5MG DAILY
     Route: 048
     Dates: start: 20100719, end: 20100724
  2. CGP 41251 T30685+CAPS [Suspect]
     Indication: ACUTE MYELOID LEUKAEMIA
     Dosage: 50 MG, BID
     Route: 048
     Dates: start: 20100720, end: 20100724
  3. DORIPENEM [Concomitant]
  4. VANCOMYCIN [Concomitant]
  5. VORICONAZOLE [Concomitant]
  6. CLINDAMYCIN [Concomitant]
  7. NEUPOGEN [Concomitant]
  8. FLOMAX [Concomitant]
  9. NARCAN [Concomitant]
  10. FENTANYL CITRATE [Concomitant]
  11. REMERON [Concomitant]
  12. TYLENOL [Concomitant]

REACTIONS (8)
  - FEBRILE NEUTROPENIA [None]
  - INCISIONAL DRAINAGE [None]
  - MYOSITIS [None]
  - PAIN IN EXTREMITY [None]
  - SEPSIS [None]
  - SOFT TISSUE INFECTION [None]
  - TENOSYNOVITIS [None]
  - THROMBOCYTOPENIA [None]
